FAERS Safety Report 6270590-5 (Version None)
Quarter: 2009Q3

REPORT INFORMATION
  Report Type: 
  Country: None (occurrence: None)
  Receive Date: 20090716
  Receipt Date: 20090709
  Transmission Date: 20100115
  Serious: Yes (Death, Life-Threatening, Hospitalization)
  Sender: FDA-Public Use
  Company Number: BR-JNJFOC-20090501963

PATIENT
  Sex: Male
  Weight: 50 kg

DRUGS (23)
  1. TMC125 [Suspect]
     Route: 048
  2. TMC125 [Suspect]
     Route: 048
  3. TMC125 [Suspect]
     Route: 048
  4. TMC125 [Suspect]
     Indication: HIV INFECTION
     Route: 048
  5. TMC114 [Suspect]
     Route: 048
  6. TMC114 [Suspect]
     Route: 048
  7. TMC114 [Suspect]
     Route: 048
  8. TMC114 [Suspect]
     Indication: HIV INFECTION
     Route: 048
  9. RITONAVIR [Suspect]
     Route: 048
  10. RITONAVIR [Suspect]
     Route: 048
  11. RITONAVIR [Suspect]
     Route: 048
  12. RITONAVIR [Suspect]
     Indication: HIV INFECTION
     Route: 048
  13. TENOFOVIR [Suspect]
     Route: 048
  14. TENOFOVIR [Suspect]
     Indication: HIV INFECTION
     Route: 048
  15. EPIVIR [Suspect]
     Route: 048
  16. EPIVIR [Suspect]
     Indication: HIV INFECTION
     Route: 048
  17. SALINE 0.9% [Concomitant]
     Indication: PYREXIA
  18. COTRIM [Concomitant]
     Indication: PNEUMOCYSTIS JIROVECI PNEUMONIA
     Route: 048
  19. PIPERACILLIN [Concomitant]
     Indication: PYREXIA
  20. FLUCONAZOLE [Concomitant]
     Indication: PYREXIA
  21. CHLORPROMAZINE [Concomitant]
     Indication: HICCUPS
  22. RED BLOOD CELLS [Concomitant]
     Indication: ANAEMIA
  23. LEVOFLOXACIN [Concomitant]
     Indication: PYREXIA

REACTIONS (1)
  - HODGKIN'S DISEASE [None]
